FAERS Safety Report 8911475 (Version 3)
Quarter: 2013Q1

REPORT INFORMATION
  Report Type: Spontaneous
  Country: US (occurrence: US)
  Receive Date: 20121116
  Receipt Date: 20130206
  Transmission Date: 20140127
  Serious: Yes (Other)
  Sender: FDA-Public Use
  Company Number: US-AMGEN-USASP2012072721

PATIENT
  Age: 72 Year
  Sex: Male

DRUGS (3)
  1. EPOGEN [Suspect]
     Indication: RENAL FAILURE CHRONIC
     Dosage: 10000 UNIT, 3 TIMES/WK
     Dates: start: 2012
  2. IRON [Concomitant]
     Dosage: UNK
  3. SALINE                             /00075401/ [Concomitant]
     Dosage: UNK

REACTIONS (6)
  - Heart rate increased [Unknown]
  - Dyspnoea [Not Recovered/Not Resolved]
  - Procedural hypotension [Unknown]
  - Procedural hypertension [Unknown]
  - Device related infection [Recovered/Resolved]
  - Haematocrit increased [Unknown]
